FAERS Safety Report 15206404 (Version 1)
Quarter: 2018Q3

REPORT INFORMATION
  Report Type: Spontaneous
  Country: TR (occurrence: TR)
  Receive Date: 20180727
  Receipt Date: 20180727
  Transmission Date: 20181010
  Serious: No
  Sender: FDA-Public Use
  Company Number: TR-LUPIN PHARMACEUTICALS INC.-2018-03387

PATIENT
  Age: 58 Year
  Sex: Female

DRUGS (7)
  1. BUPROPION. [Suspect]
     Active Substance: BUPROPION
     Indication: MAJOR DEPRESSION
     Dosage: 150 MG, QD
     Route: 065
  2. BUPROPION. [Suspect]
     Active Substance: BUPROPION
     Dosage: 150 MG, QD
     Route: 065
  3. AGOMELATINE [Concomitant]
     Active Substance: AGOMELATINE
     Indication: MAJOR DEPRESSION
  4. BUPROPION. [Suspect]
     Active Substance: BUPROPION
     Indication: SOMATIC SYMPTOM DISORDER
     Dosage: 300 MG, QD
     Route: 065
  5. AGOMELATINE [Concomitant]
     Active Substance: AGOMELATINE
     Indication: SOMATIC SYMPTOM DISORDER
     Dosage: 25 MG, QD
     Route: 065
  6. QUETIAPINE. [Concomitant]
     Active Substance: QUETIAPINE
     Indication: SOMATIC SYMPTOM DISORDER
     Dosage: 100 MG, QD
     Route: 065
  7. QUETIAPINE. [Concomitant]
     Active Substance: QUETIAPINE
     Indication: MAJOR DEPRESSION

REACTIONS (4)
  - Insomnia [Recovered/Resolved]
  - Restlessness [Unknown]
  - Female orgasmic disorder [Recovered/Resolved]
  - Anxiety [Unknown]
